FAERS Safety Report 14596295 (Version 2)
Quarter: 2018Q1

REPORT INFORMATION
  Report Type: Report from Study
  Country: CH (occurrence: CH)
  Receive Date: 20180303
  Receipt Date: 20180328
  Transmission Date: 20180509
  Serious: Yes (Hospitalization, Other)
  Sender: FDA-Public Use
  Company Number: PHHY2017CH176550

PATIENT
  Sex: Male
  Weight: 67 kg

DRUGS (19)
  1. AMIODARONE [Suspect]
     Active Substance: AMIODARONE
     Indication: PRODUCT USED FOR UNKNOWN INDICATION
     Dosage: 100 MG, QD
     Route: 048
     Dates: start: 20161201, end: 20171215
  2. LYMAN [Concomitant]
     Indication: MYALGIA
     Route: 061
     Dates: start: 20160101
  3. ZOLDORM [Concomitant]
     Active Substance: ZOLPIDEM TARTRATE
     Indication: SLEEP DISORDER
     Dosage: 10 MG, QD
     Route: 048
     Dates: start: 20170501
  4. ACEMETACIN [Concomitant]
     Active Substance: ACEMETACIN
     Indication: PROSTATIC DISORDER
     Dosage: 180 MG, QD
     Route: 048
  5. AMLODIPINE [Concomitant]
     Active Substance: AMLODIPINE BESYLATE
     Indication: PRODUCT USED FOR UNKNOWN INDICATION
     Dosage: UNK
     Route: 048
     Dates: start: 20171209
  6. POLSTIMOL [Concomitant]
     Indication: DYSURIA
     Dosage: 69 MG, QD
     Route: 048
  7. VALSARTAN SANDOZ [Concomitant]
     Active Substance: VALSARTAN
     Indication: SEDATIVE THERAPY
     Dosage: 160 MG, QD
     Route: 048
     Dates: start: 20170401
  8. PANTOPRAZOL SANDOZ [Concomitant]
     Active Substance: PANTOPRAZOLE SODIUM
     Indication: GASTRIC DISORDER
     Dosage: 20 MG, QD
     Route: 048
     Dates: start: 20171101
  9. STERCULIA [Concomitant]
     Active Substance: HERBALS\KARAYA GUM
     Indication: BOWEL MOVEMENT IRREGULARITY
     Dosage: 200 MG, UNK
     Route: 048
     Dates: start: 20170401
  10. PREGABALIN SANDOZ [Concomitant]
     Indication: CARDIAC DISORDER
     Dosage: 25 MG, QD
     Route: 048
     Dates: start: 20170501
  11. MARCUMAR [Concomitant]
     Active Substance: PHENPROCOUMON
     Indication: ANTICOAGULANT THERAPY
     Dosage: 3 MG, UNK
     Route: 048
     Dates: start: 20040101
  12. AMOXICILLIN AND CLAVULANATE POTASSIUM [Suspect]
     Active Substance: AMOXICILLIN\CLAVULANATE POTASSIUM
     Indication: PROSTATIC PAIN
     Dosage: 1500 MG, QD
     Route: 048
     Dates: start: 20171107, end: 20171128
  13. BILOL [Concomitant]
     Active Substance: BISOPROLOL
     Indication: CARDIAC DISORDER
     Dosage: 1.25 MG, QD
     Route: 048
     Dates: start: 20160101
  14. BILOL [Concomitant]
     Active Substance: BISOPROLOL
     Dosage: 2.5 MG, UNK
     Route: 048
     Dates: start: 20171221
  15. VALSARTAN SANDOZ [Concomitant]
     Active Substance: VALSARTAN
     Dosage: 320 MG, UNK
     Route: 048
  16. LEXOTANIL [Concomitant]
     Active Substance: BROMAZEPAM
     Indication: PAIN
     Dosage: UNK UNK, QD
     Route: 048
     Dates: start: 20170501
  17. RHEUMON [Concomitant]
     Indication: MYALGIA
     Dosage: UNK
     Route: 061
     Dates: start: 20170401
  18. MIRTAZAPIN SANDOZ [Concomitant]
     Indication: SLEEP DISORDER
     Dosage: 15 MG, QD
     Route: 048
     Dates: start: 20160101
  19. PREGABALIN SANDOZ [Concomitant]
     Dosage: 75 MG, QD
     Route: 048

REACTIONS (5)
  - Nocturia [Not Recovered/Not Resolved]
  - Drug ineffective [Not Recovered/Not Resolved]
  - Hypertension [Recovering/Resolving]
  - Eye disorder [Unknown]
  - Oedema peripheral [Recovering/Resolving]

NARRATIVE: CASE EVENT DATE: 2016
